FAERS Safety Report 10757035 (Version 1)
Quarter: 2015Q1

REPORT INFORMATION
  Report Type: Spontaneous
  Country: CN (occurrence: CN)
  Receive Date: 20150203
  Receipt Date: 20150203
  Transmission Date: 20150721
  Serious: Yes (Death)
  Sender: FDA-Public Use
  Company Number: CN-CIPLA LTD.-2015CN00787

PATIENT

DRUGS (4)
  1. 5-FU [Suspect]
     Active Substance: FLUOROURACIL
     Indication: COLORECTAL CANCER METASTATIC
     Dosage: 400 MG/M2 D1
  2. 5-FU [Suspect]
     Active Substance: FLUOROURACIL
     Dosage: 2400 MG/M2 FOR 46 H EVERY 2 WEEKS
  3. BEVACIZUMAB [Suspect]
     Active Substance: BEVACIZUMAB
     Indication: COLORECTAL CANCER METASTATIC
     Dosage: 5 MG/KG EVERY 2 WEEKS
  4. IRINOTECAN [Suspect]
     Active Substance: IRINOTECAN
     Indication: COLORECTAL CANCER
     Dosage: 180 MG/M2 D1

REACTIONS (1)
  - Central nervous system haemorrhage [Fatal]
